FAERS Safety Report 17451888 (Version 1)
Quarter: 2020Q1

REPORT INFORMATION
  Report Type: Spontaneous
  Country: FR (occurrence: FR)
  Receive Date: 20200224
  Receipt Date: 20200224
  Transmission Date: 20200409
  Serious: Yes (Hospitalization, Other)
  Sender: FDA-Public Use
  Company Number: FR-PFIZER INC-2020075211

PATIENT
  Age: 34 Year
  Sex: Male

DRUGS (8)
  1. PRIMOBOLAN [METENOLONE ACETATE] [Suspect]
     Active Substance: METHENOLONE ACETATE
     Indication: ANABOLIC DIET
     Dosage: UNK
     Route: 048
     Dates: start: 20191209, end: 20191231
  2. CLENBUTEROL [Suspect]
     Active Substance: CLENBUTEROL
     Indication: ANABOLIC DIET
     Dosage: UNK
     Route: 048
     Dates: start: 20191209, end: 20191231
  3. DOSTINEX [Suspect]
     Active Substance: CABERGOLINE
     Indication: ANABOLIC DIET
     Dosage: UNK
     Route: 048
     Dates: start: 20191209, end: 20191231
  4. TESTOSTERONE PROPIONATE. [Suspect]
     Active Substance: TESTOSTERONE PROPIONATE
     Indication: ANABOLIC DIET
     Dosage: UNK
     Route: 048
     Dates: start: 20191209, end: 20191231
  5. ARIMIDEX [Suspect]
     Active Substance: ANASTROZOLE
     Indication: ANABOLIC DIET
     Dosage: UNK
     Route: 048
     Dates: start: 20191209, end: 20191231
  6. TRENBOLONE ACETATE [Suspect]
     Active Substance: TRENBOLONE ACETATE
     Indication: ANABOLIC DIET
     Dosage: UNK
     Route: 048
     Dates: start: 20191209, end: 20191231
  7. OXYMETHOLONE [Suspect]
     Active Substance: OXYMETHOLONE
     Indication: ANABOLIC DIET
     Dosage: UNK
     Route: 048
     Dates: start: 20191209, end: 20191231
  8. OXANDROLONE. [Suspect]
     Active Substance: OXANDROLONE
     Indication: ANABOLIC DIET
     Dosage: UNK
     Route: 048
     Dates: start: 20191209, end: 20191231

REACTIONS (5)
  - Cholestasis [Not Recovered/Not Resolved]
  - Off label use [Unknown]
  - Product use in unapproved indication [Unknown]
  - Renal failure [Not Recovered/Not Resolved]
  - Hepatocellular injury [Not Recovered/Not Resolved]

NARRATIVE: CASE EVENT DATE: 201912
